FAERS Safety Report 18364384 (Version 1)
Quarter: 2020Q4

REPORT INFORMATION
  Report Type: Spontaneous
  Country: CA (occurrence: CA)
  Receive Date: 20201009
  Receipt Date: 20201009
  Transmission Date: 20210114
  Serious: Yes (Hospitalization)
  Sender: FDA-Public Use
  Company Number: CA-ALKEM LABORATORIES LIMITED-CA-ALKEM-2020-03670

PATIENT

DRUGS (3)
  1. GLECAPREVIR-PIBRENTASVIR [Suspect]
     Active Substance: GLECAPREVIR\PIBRENTASVIR
     Indication: ANTIVIRAL TREATMENT
     Dosage: 300/120 MG, BEFORE SURGERY AND ONCE A DAY AFTER TRANSPLANT
     Route: 048
  2. TACROLIMUS. [Suspect]
     Active Substance: TACROLIMUS
     Indication: PRODUCT USED FOR UNKNOWN INDICATION
     Dosage: UNK
     Route: 065
  3. EZETIMIBE. [Suspect]
     Active Substance: EZETIMIBE
     Indication: ANTIVIRAL PROPHYLAXIS
     Dosage: 10 MILLIGRAM, BEFORE SURGERY AND ONCE A DAY AFTER TRANSPLANT
     Route: 048

REACTIONS (1)
  - Hepatic enzyme increased [Recovered/Resolved]
